FAERS Safety Report 13060031 (Version 7)
Quarter: 2024Q2

REPORT INFORMATION
  Report Type: Report from Study
  Country: US (occurrence: US)
  Receive Date: 20161223
  Receipt Date: 20240624
  Transmission Date: 20240716
  Serious: Yes (Other)
  Sender: FDA-Public Use
  Company Number: US-SHIRE-US201619460

PATIENT
  Age: 33 Year
  Sex: Female

DRUGS (4)
  1. LANADELUMAB [Suspect]
     Active Substance: LANADELUMAB
     Indication: Immune system disorder
     Dosage: 300 MILLIGRAM, Q2WEEKS
     Route: 058
     Dates: start: 202401
  2. LANADELUMAB [Suspect]
     Active Substance: LANADELUMAB
     Indication: Hereditary angioedema
     Dosage: 300 MILLIGRAM, Q2WEEKS
     Route: 058
  3. FIRAZYR [Suspect]
     Active Substance: ICATIBANT ACETATE
     Indication: Hereditary angioedema
     Dosage: 30 MILLIGRAM
     Route: 058
     Dates: start: 201610
  4. FIRAZYR [Suspect]
     Active Substance: ICATIBANT ACETATE
     Indication: Hereditary angioedema
     Dosage: 30 MILLIGRAM
     Route: 058
     Dates: start: 201610

REACTIONS (4)
  - Hereditary angioedema [Recovered/Resolved]
  - Back pain [Unknown]
  - Weight decreased [Unknown]
  - Headache [Unknown]

NARRATIVE: CASE EVENT DATE: 20161212
